FAERS Safety Report 5025074-9 (Version None)
Quarter: 2006Q2

REPORT INFORMATION
  Report Type: 
  Country: None (occurrence: None)
  Receive Date: 20060607
  Receipt Date: 20060519
  Transmission Date: 20061013
  Serious: Yes (Hospitalization)
  Sender: FDA-Public Use
  Company Number: US200605001418

PATIENT
  Age: 59 Year
  Sex: Female
  Weight: 37.2 kg

DRUGS (2)
  1. FORTEO [Suspect]
     Indication: OSTEOPOROSIS
     Dates: start: 20050801
  2. FORTEO PEN (FORTEO PEN) [Concomitant]

REACTIONS (3)
  - ARTHRALGIA [None]
  - FALL [None]
  - HIP FRACTURE [None]
